FAERS Safety Report 6635080-6 (Version None)
Quarter: 2010Q1

REPORT INFORMATION
  Report Type: 
  Country: None (occurrence: None)
  Receive Date: 20100315
  Receipt Date: 20100303
  Transmission Date: 20100710
  Serious: Yes (Hospitalization)
  Sender: FDA-Public Use
  Company Number: PHHY2010JP09301

PATIENT
  Sex: Male

DRUGS (2)
  1. GLEEVEC [Suspect]
     Indication: GASTROINTESTINAL STROMAL TUMOUR
     Dosage: 400 MG DAILY
     Route: 048
     Dates: start: 20091201
  2. GLEEVEC [Suspect]
     Dosage: 300 MG DAILY
     Route: 048
     Dates: end: 20100201

REACTIONS (6)
  - ASCITES [None]
  - GENERALISED OEDEMA [None]
  - HEPATIC CYST [None]
  - MALIGNANT NEOPLASM PROGRESSION [None]
  - METASTASES TO LIVER [None]
  - OEDEMA [None]
